FAERS Safety Report 7948192-1 (Version None)
Quarter: 2011Q4

REPORT INFORMATION
  Report Type: 
  Country: None (occurrence: None)
  Receive Date: 20111130
  Receipt Date: 20111115
  Transmission Date: 20120403
  Serious: Yes (Congenital Anomaly)
  Sender: FDA-Public Use
  Company Number: DE-MYLANLABS-2011S1023517

PATIENT
  Age: 0 Year
  Sex: Male
  Weight: 2.91 kg

DRUGS (10)
  1. FOLIC ACID FORTE [Concomitant]
     Dosage: 0 - 36.3 GW
     Route: 064
     Dates: start: 20091016, end: 20100628
  2. CEFUROXIME [Concomitant]
     Dosage: 4.1- 5.3 GW
     Route: 064
     Dates: start: 20091114, end: 20091123
  3. INFLUENZA VACCINE [Concomitant]
     Dosage: 15 DAYS PRECONCEPTIONAL
     Route: 064
  4. PREDNISOLONE [Concomitant]
     Dosage: 0 - 12.6 GW
     Route: 064
     Dates: start: 20091016, end: 20100114
  5. FUSIDIC ACID [Concomitant]
     Dosage: 12.5 - 13.1 GW
     Route: 064
     Dates: start: 20100113, end: 20100116
  6. METHYLDOPA [Suspect]
     Dosage: 750 [MG/D ]
     Route: 064
     Dates: start: 20091016, end: 20100712
  7. ALBUTEROL SULFATE AUTOHALER [Concomitant]
     Dosage: 4.1 - 15 GW
     Route: 064
     Dates: start: 20091114, end: 20100129
  8. ASPIRIN [Concomitant]
     Dosage: 0 - 8 GW
     Route: 064
  9. NEPRESOL /00017902/ [Concomitant]
     Dosage: 0 - 4 GW
     Route: 064
  10. METOPROLOL TARTRATE [Suspect]
     Dosage: 100 [MG/D ]
     Route: 064
     Dates: start: 20091016, end: 20100712

REACTIONS (2)
  - TALIPES [None]
  - MATERNAL EXPOSURE DURING PREGNANCY [None]
